FAERS Safety Report 5607284-2 (Version None)
Quarter: 2008Q1

REPORT INFORMATION
  Report Type: 
  Country: None (occurrence: None)
  Receive Date: 20080128
  Receipt Date: 20080128
  Transmission Date: 20080703
  Serious: Yes (Other)
  Sender: FDA-Public Use
  Company Number: None

PATIENT
  Age: 33 Year
  Sex: Female
  Weight: 52.1637 kg

DRUGS (1)
  1. CHANTIX [Suspect]
     Indication: SMOKING CESSATION THERAPY
     Dosage: STARTER PACK PO
     Route: 048
     Dates: start: 20071112, end: 20071125

REACTIONS (11)
  - ABNORMAL DREAMS [None]
  - AGITATION [None]
  - ANGER [None]
  - CONSTIPATION [None]
  - DEPRESSION [None]
  - DYSPNOEA [None]
  - DYSURIA [None]
  - LIBIDO DECREASED [None]
  - SUICIDAL IDEATION [None]
  - VISUAL DISTURBANCE [None]
  - WEIGHT INCREASED [None]
